FAERS Safety Report 7304734-0 (Version None)
Quarter: 2011Q1

REPORT INFORMATION
  Report Type: 
  Country: None (occurrence: None)
  Receive Date: 20110222
  Receipt Date: 20110218
  Transmission Date: 20110831
  Serious: No
  Sender: FDA-Public Use
  Company Number: US-PFIZER INC-2011036801

PATIENT
  Sex: Female
  Weight: 79.365 kg

DRUGS (10)
  1. WELLBUTRIN [Concomitant]
     Dosage: UNK
  2. METOPROLOL [Concomitant]
     Dosage: 50 MG, UNK
  3. MELOXICAM [Concomitant]
     Dosage: 15 MG, DAILY
  4. GABAPENTIN [Concomitant]
     Dosage: 600 MG, 3X/DAY
  5. CALCIUM WITH VITAMIN D [Concomitant]
     Dosage: UNK, 2X/DAY
  6. ASPIRIN [Concomitant]
     Dosage: UNK
  7. HYDROCODONE [Concomitant]
     Dosage: 200 MG, DAILY
  8. NICOTROL [Suspect]
     Indication: SMOKING CESSATION THERAPY
     Dosage: 10 MG, UNK
     Route: 055
     Dates: start: 20110217
  9. LISINOPRIL [Concomitant]
     Dosage: 5 MG, DAILY
  10. LIPITOR [Concomitant]
     Dosage: 80 MG, DAILY

REACTIONS (1)
  - DRUG INEFFECTIVE [None]
